FAERS Safety Report 5017529-8 (Version None)
Quarter: 2006Q2

REPORT INFORMATION
  Report Type: 
  Country: None (occurrence: None)
  Receive Date: 20060601
  Receipt Date: 20060601
  Transmission Date: 20061013
  Serious: Yes (Hospitalization)
  Sender: FDA-Public Use
  Company Number: None

PATIENT
  Age: 66 Year
  Sex: Male
  Weight: 53 kg

DRUGS (2)
  1. PHENYTOIN [Suspect]
     Indication: GRAND MAL CONVULSION
     Dosage: TID (100 MG TID)   100 MCG QID
     Dates: start: 20050114, end: 20051202
  2. PHENYTOIN [Suspect]
     Indication: GRAND MAL CONVULSION
     Dosage: TID (100 MG TID)   100 MCG QID
     Dates: start: 20051208

REACTIONS (10)
  - ANTICONVULSANT DRUG LEVEL ABOVE THERAPEUTIC [None]
  - COMMUNICATION DISORDER [None]
  - CONDITION AGGRAVATED [None]
  - CONFUSIONAL STATE [None]
  - CONVULSION [None]
  - DIFFICULTY IN WALKING [None]
  - DRUG TOXICITY [None]
  - HALLUCINATION [None]
  - POSTICTAL STATE [None]
  - SOMNOLENCE [None]
